FAERS Safety Report 26100247 (Version 2)
Quarter: 2025Q4

REPORT INFORMATION
  Report Type: Spontaneous
  Country: EU (occurrence: EU)
  Receive Date: 20251128
  Receipt Date: 20251208
  Transmission Date: 20260118
  Serious: No
  Sender: ROCHE
  Company Number: EU-002147023-NVSC2025FR181444

PATIENT
  Age: 39 Year
  Sex: Female

DRUGS (2)
  1. OMALIZUMAB [Suspect]
     Active Substance: OMALIZUMAB
     Indication: Chronic spontaneous urticaria
     Dosage: 450 MG, QMO
     Route: 065
  2. OMALIZUMAB [Suspect]
     Active Substance: OMALIZUMAB
     Dosage: 600 MG, Q2W
     Route: 065

REACTIONS (3)
  - Chronic spontaneous urticaria [Unknown]
  - Condition aggravated [Unknown]
  - Off label use [Unknown]
